FAERS Safety Report 5301658-5 (Version None)
Quarter: 2007Q2

REPORT INFORMATION
  Report Type: 
  Country: None (occurrence: None)
  Receive Date: 20070419
  Receipt Date: 20070411
  Transmission Date: 20071010
  Serious: Yes (Death)
  Sender: FDA-Public Use
  Company Number: FR-BRISTOL-MYERS SQUIBB COMPANY-13751557

PATIENT
  Age: 64 Year
  Sex: Female

DRUGS (1)
  1. VASTEN [Suspect]
     Route: 048
     Dates: end: 20070401

REACTIONS (1)
  - DEATH [None]
